FAERS Safety Report 13359934 (Version 1)
Quarter: 2017Q1

REPORT INFORMATION
  Report Type: Spontaneous
  Country: US (occurrence: US)
  Receive Date: 20170322
  Receipt Date: 20170322
  Transmission Date: 20170429
  Serious: No
  Sender: FDA-Public Use
  Company Number: US-009507513-1703USA005674

PATIENT
  Age: 90 Year
  Sex: Female

DRUGS (1)
  1. BELSOMRA [Suspect]
     Active Substance: SUVOREXANT
     Indication: INSOMNIA
     Dosage: 10 MG/ONE TABLET 30 MINUTES BEFORE BEDTIME
     Route: 048

REACTIONS (2)
  - Abnormal dreams [Recovering/Resolving]
  - Nightmare [Recovering/Resolving]
